FAERS Safety Report 5319109-3 (Version None)
Quarter: 2007Q2

REPORT INFORMATION
  Report Type: 
  Country: None (occurrence: None)
  Receive Date: 20070508
  Receipt Date: 20070504
  Transmission Date: 20071010
  Serious: Yes (Hospitalization)
  Sender: FDA-Public Use
  Company Number: A0650135A

PATIENT
  Age: 54 Year
  Sex: Female

DRUGS (1)
  1. CLAVULIN [Suspect]
     Dosage: 875MG TWICE PER DAY
     Route: 048
     Dates: start: 20070430, end: 20070430

REACTIONS (2)
  - DIZZINESS [None]
  - HYPERTENSION [None]
